FAERS Safety Report 5638236-4 (Version None)
Quarter: 2008Q1

REPORT INFORMATION
  Report Type: 
  Country: None (occurrence: None)
  Receive Date: 20080220
  Receipt Date: 20080203
  Transmission Date: 20080703
  Serious: Yes (Other)
  Sender: FDA-Public Use
  Company Number: 2008SP002774

PATIENT
  Age: 61 Year
  Sex: Male

DRUGS (6)
  1. MIRALAX [Suspect]
     Indication: CONSTIPATION
     Dosage: 1 DF;ONCE;PO
     Route: 048
     Dates: start: 20080202
  2. LYRICA [Concomitant]
  3. GLIPIZIDE [Concomitant]
  4. METOCLOPRAMIDE [Concomitant]
  5. OXYCODONE HCL [Concomitant]
  6. HYDROMORPHONE HCL [Concomitant]

REACTIONS (3)
  - ABDOMINAL PAIN UPPER [None]
  - GASTROINTESTINAL SOUNDS ABNORMAL [None]
  - PHARMACEUTICAL PRODUCT COMPLAINT [None]
